FAERS Safety Report 4650929-4 (Version None)
Quarter: 2005Q2

REPORT INFORMATION
  Report Type: 
  Country: None (occurrence: None)
  Receive Date: 20050503
  Receipt Date: 20050419
  Transmission Date: 20051028
  Serious: Yes (Other)
  Sender: FDA-Public Use
  Company Number: US-GLAXOSMITHKLINE-A0554755A

PATIENT
  Age: 47 Year
  Sex: Female
  Weight: 81 kg

DRUGS (2)
  1. VIVARIN TABLETS [Suspect]
     Route: 048
     Dates: start: 19900101
  2. ZANTAC [Concomitant]
     Indication: GASTRIC DISORDER
     Route: 048

REACTIONS (1)
  - EYE HAEMORRHAGE [None]
